FAERS Safety Report 18867735 (Version 2)
Quarter: 2021Q2

REPORT INFORMATION
  Report Type: Spontaneous
  Country: US (occurrence: US)
  Receive Date: 20210209
  Receipt Date: 20210414
  Transmission Date: 20210717
  Serious: No
  Sender: FDA-Public Use
  Company Number: US-ASTRAZENECA-2021A035594

PATIENT
  Age: 994 Month
  Sex: Female
  Weight: 54.4 kg

DRUGS (6)
  1. FLUTICASONE. [Concomitant]
     Active Substance: FLUTICASONE
     Indication: DYSPNOEA
     Dosage: TWO TIMES A DAY
     Route: 055
  2. ALBUTEROL. [Concomitant]
     Active Substance: ALBUTEROL
  3. FASENRA [Suspect]
     Active Substance: BENRALIZUMAB
     Indication: STEROID THERAPY
     Route: 058
     Dates: start: 20200416, end: 20210325
  4. XOPENEX [Concomitant]
     Active Substance: LEVALBUTEROL HYDROCHLORIDE
     Indication: DYSPNOEA
     Dosage: 45.0UG AS REQUIRED
     Route: 055
  5. STEROID [Concomitant]
     Active Substance: UNSPECIFIED INGREDIENT
     Indication: ASTHMA
  6. FASENRA [Suspect]
     Active Substance: BENRALIZUMAB
     Indication: ASTHMA
     Route: 058
     Dates: start: 20200416, end: 20210325

REACTIONS (8)
  - Weight decreased [Unknown]
  - Injection site extravasation [Unknown]
  - Dyspnoea [Unknown]
  - Wrong technique in device usage process [Unknown]
  - Dysphonia [Unknown]
  - Dyspnoea exertional [Unknown]
  - Incorrect dose administered by device [Unknown]
  - Device leakage [Unknown]

NARRATIVE: CASE EVENT DATE: 202012
